FAERS Safety Report 18793593 (Version 1)
Quarter: 2021Q1

REPORT INFORMATION
  Report Type: Spontaneous
  Country: AU (occurrence: AU)
  Receive Date: 20210127
  Receipt Date: 20210127
  Transmission Date: 20210419
  Serious: Yes (Other)
  Sender: FDA-Public Use
  Company Number: AU-ROCHE-2754979

PATIENT
  Age: 69 Year
  Sex: Female

DRUGS (1)
  1. LUCENTIS [Suspect]
     Active Substance: RANIBIZUMAB
     Indication: PRODUCT USED FOR UNKNOWN INDICATION
     Dosage: UNK
     Route: 065

REACTIONS (11)
  - Arthralgia [Unknown]
  - Faecaloma [Unknown]
  - Stomatitis [Unknown]
  - Weight decreased [Unknown]
  - Pollakiuria [Unknown]
  - Fatigue [Unknown]
  - Pallor [Unknown]
  - Oropharyngeal pain [Unknown]
  - Dizziness [Unknown]
  - Eye oedema [Unknown]
  - Nausea [Unknown]
